FAERS Safety Report 25088179 (Version 2)
Quarter: 2025Q3

REPORT INFORMATION
  Report Type: Report from Study
  Country: US (occurrence: US)
  Receive Date: 20250318
  Receipt Date: 20250802
  Transmission Date: 20251020
  Serious: Yes (Other)
  Sender: ALEXION PHARMACEUTICALS
  Company Number: US-ASTRAZENECA-202503USA008767US

PATIENT
  Sex: Female

DRUGS (1)
  1. OLAPARIB [Suspect]
     Active Substance: OLAPARIB
     Indication: Breast cancer
     Dosage: 300 MILLIGRAM, BID
     Dates: start: 20250201

REACTIONS (14)
  - Diarrhoea [Not Recovered/Not Resolved]
  - Neuropathy peripheral [Not Recovered/Not Resolved]
  - Abdominal pain [Not Recovered/Not Resolved]
  - Abdominal distension [Not Recovered/Not Resolved]
  - Neutrophil count increased [Unknown]
  - Red blood cell count decreased [Unknown]
  - Product dose omission issue [Unknown]
  - Illness [Unknown]
  - Fatigue [Recovering/Resolving]
  - Oropharyngeal pain [Not Recovered/Not Resolved]
  - Pharyngeal swelling [Not Recovered/Not Resolved]
  - Cough [Unknown]
  - Chest discomfort [Not Recovered/Not Resolved]
  - Sinus congestion [Not Recovered/Not Resolved]
